FAERS Safety Report 19892794 (Version 1)
Quarter: 2021Q3

REPORT INFORMATION
  Report Type: Spontaneous
  Country: DE (occurrence: DE)
  Receive Date: 20210928
  Receipt Date: 20210928
  Transmission Date: 20211014
  Serious: Yes (Hospitalization)
  Sender: FDA-Public Use
  Company Number: DE-MYLANLABS-2021M1066191

PATIENT
  Age: 54 Year
  Sex: Female

DRUGS (3)
  1. PREGABALIN. [Suspect]
     Active Substance: PREGABALIN
     Indication: PRODUCT USED FOR UNKNOWN INDICATION
     Dosage: 50 MILLIGRAM (DISCONTINUED FOR 1 WEEK)
  2. VENLAFAXINE [Suspect]
     Active Substance: VENLAFAXINE HYDROCHLORIDE
     Indication: PRODUCT USED FOR UNKNOWN INDICATION
     Dosage: 75 MILLIGRAM
  3. ZOPICLON [Concomitant]
     Active Substance: ZOPICLONE
     Dosage: 3.75 MILLIGRAM

REACTIONS (4)
  - Hypertension [Unknown]
  - Depressed mood [Unknown]
  - Product dispensing error [Unknown]
  - General physical health deterioration [Unknown]
